FAERS Safety Report 20767755 (Version 1)
Quarter: 2022Q2

REPORT INFORMATION
  Report Type: Report from Study
  Country: ES (occurrence: ES)
  Receive Date: 20220429
  Receipt Date: 20220429
  Transmission Date: 20220721
  Serious: Yes (Hospitalization)
  Sender: FDA-Public Use
  Company Number: None

PATIENT
  Age: 58 Year
  Sex: Male

DRUGS (6)
  1. SIMVASTATIN [Suspect]
     Active Substance: SIMVASTATIN
     Dosage: UNK
     Route: 048
     Dates: start: 20120606, end: 20120620
  2. HUMALOG MIX75/25 [Concomitant]
     Active Substance: INSULIN LISPRO
     Dosage: 1-0-0, 1.HUMALOG MIX25 KWIKPEN 100 U/ML SUSPENSION FOR INJECTION, 5 PREFILLED PENS
     Route: 058
     Dates: start: 2009
  3. OMEPRAZOLE [Concomitant]
     Active Substance: OMEPRAZOLE
     Dosage: 0-0-1
     Route: 048
     Dates: start: 2011
  4. GLIPIZIDE [Concomitant]
     Active Substance: GLIPIZIDE
     Dosage: 1-1-1, 100 TABLETS
     Route: 048
     Dates: start: 2008
  5. TRIFLUSAL [Concomitant]
     Active Substance: TRIFLUSAL
     Dosage: 0-0-1
     Route: 048
     Dates: start: 2010
  6. METFORMIN HYDROCHLORIDE [Concomitant]
     Active Substance: METFORMIN HYDROCHLORIDE
     Dosage: 1-0-1, 50 TABLETS
     Route: 048
     Dates: start: 2007

REACTIONS (1)
  - Acute generalised exanthematous pustulosis [Recovered/Resolved]

NARRATIVE: CASE EVENT DATE: 20120620
